FAERS Safety Report 5005143-X (Version None)
Quarter: 2006Q2

REPORT INFORMATION
  Report Type: 
  Country: None (occurrence: None)
  Receive Date: 20060518
  Receipt Date: 20050720
  Transmission Date: 20061013
  Serious: No
  Sender: FDA-Public Use
  Company Number: 200516647GDDC

PATIENT
  Age: 32 Year
  Sex: Female

DRUGS (3)
  1. KETEK [Suspect]
     Indication: SINUSITIS
     Route: 048
     Dates: start: 20050710, end: 20050716
  2. KETEK [Suspect]
     Indication: EAR INFECTION
     Route: 048
     Dates: start: 20050710, end: 20050716
  3. ETORICOXIB [Concomitant]
     Indication: INFLAMMATION
     Dosage: DOSE: UNK
     Dates: start: 20050711

REACTIONS (3)
  - DIZZINESS [None]
  - DRUG INTERACTION [None]
  - SOMNOLENCE [None]
